FAERS Safety Report 8080578-X (Version None)
Quarter: 2012Q1

REPORT INFORMATION
  Report Type: 
  Country: None (occurrence: None)
  Receive Date: 20120130
  Receipt Date: 20120124
  Transmission Date: 20120608
  Serious: Yes (Hospitalization)
  Sender: FDA-Public Use
  Company Number: US-SHIONOGI, INC-2012000081

PATIENT
  Age: 6 Year
  Sex: Female

DRUGS (2)
  1. KAPVAY [Suspect]
     Dosage: UNK
  2. CLONIDINE HCL [Suspect]
     Dosage: UNK

REACTIONS (1)
  - HALLUCINATION [None]
